FAERS Safety Report 5929215-8 (Version None)
Quarter: 2008Q4

REPORT INFORMATION
  Report Type: 
  Country: None (occurrence: None)
  Receive Date: 20081023
  Receipt Date: 20081023
  Transmission Date: 20090506
  Serious: Yes (Other)
  Sender: FDA-Public Use
  Company Number: None

PATIENT

DRUGS (1)
  1. OVIDE [Suspect]
     Indication: LICE INFESTATION
     Dosage: ONE TIME APPLICATION ONE TIME TOP
     Route: 061
     Dates: start: 20081021, end: 20081022

REACTIONS (2)
  - CONDITION AGGRAVATED [None]
  - CONVULSION [None]
